FAERS Safety Report 20147752 (Version 4)
Quarter: 2024Q2

REPORT INFORMATION
  Report Type: Report from Study
  Country: NL (occurrence: NL)
  Receive Date: 20211203
  Receipt Date: 20240612
  Transmission Date: 20240716
  Serious: Yes (Other)
  Sender: FDA-Public Use
  Company Number: NL-JNJFOC-20210504474

PATIENT
  Age: 5 Decade
  Sex: Female
  Weight: 82 kg

DRUGS (32)
  1. MACITENTAN [Suspect]
     Active Substance: MACITENTAN
     Indication: Pulmonary hypertension
     Route: 048
     Dates: start: 20190320
  2. SELEXIPAG [Suspect]
     Active Substance: SELEXIPAG
     Indication: Pulmonary arterial hypertension
     Route: 048
     Dates: start: 20190512, end: 20190521
  3. SELEXIPAG [Suspect]
     Active Substance: SELEXIPAG
     Route: 048
     Dates: start: 20190521, end: 20190527
  4. SELEXIPAG [Suspect]
     Active Substance: SELEXIPAG
     Route: 048
     Dates: start: 20190605, end: 20190612
  5. SELEXIPAG [Suspect]
     Active Substance: SELEXIPAG
     Route: 048
     Dates: start: 20190527, end: 20190605
  6. SELEXIPAG [Suspect]
     Active Substance: SELEXIPAG
     Route: 048
     Dates: start: 20190612, end: 20190619
  7. SELEXIPAG [Suspect]
     Active Substance: SELEXIPAG
     Route: 048
     Dates: start: 20190619, end: 20190701
  8. SELEXIPAG [Suspect]
     Active Substance: SELEXIPAG
     Route: 048
     Dates: start: 20190701, end: 20190707
  9. SELEXIPAG [Suspect]
     Active Substance: SELEXIPAG
     Route: 048
     Dates: start: 20190707, end: 20190717
  10. SELEXIPAG [Suspect]
     Active Substance: SELEXIPAG
     Route: 048
     Dates: start: 20190717, end: 20191128
  11. SELEXIPAG [Suspect]
     Active Substance: SELEXIPAG
     Route: 048
     Dates: start: 20191128
  12. SILDENAFIL [Concomitant]
     Active Substance: SILDENAFIL
     Indication: Pulmonary arterial hypertension
     Route: 048
     Dates: start: 20190325
  13. DICLOFENAC [Concomitant]
     Active Substance: DICLOFENAC
     Indication: Pain
     Route: 048
     Dates: start: 20191210, end: 20211115
  14. FERROUS FUMARATE [Concomitant]
     Active Substance: FERROUS FUMARATE
     Indication: Haemoglobin decreased
     Route: 048
     Dates: start: 20191128, end: 20221021
  15. POLYETHYLENE GLYCOLS [Concomitant]
     Active Substance: POLYETHYLENE GLYCOLS
     Indication: Constipation
     Route: 048
     Dates: start: 20190224, end: 20190224
  16. PANTOPRAZOLE [Concomitant]
     Active Substance: PANTOPRAZOLE
     Indication: Dyspepsia
     Route: 048
     Dates: start: 201906
  17. LIDOCAINE [Concomitant]
     Active Substance: LIDOCAINE
     Indication: Biopsy skin
     Route: 058
     Dates: start: 20190321, end: 20190321
  18. LIDOCAINE [Concomitant]
     Active Substance: LIDOCAINE
     Indication: Catheterisation cardiac
     Route: 058
     Dates: start: 20190305, end: 20190305
  19. HEPARIN [Concomitant]
     Active Substance: HEPARIN SODIUM
     Indication: Biopsy skin
     Dates: start: 20190321, end: 20190322
  20. HEPARIN [Concomitant]
     Active Substance: HEPARIN SODIUM
     Indication: Catheterisation cardiac
     Route: 065
     Dates: start: 20190305, end: 20190305
  21. ACETAMINOPHEN [Concomitant]
     Active Substance: ACETAMINOPHEN
     Indication: Pain
     Route: 048
     Dates: start: 20190224, end: 20190224
  22. POTASSIUM CHLORIDE [Concomitant]
     Active Substance: POTASSIUM CHLORIDE
     Indication: Hypokalaemia
     Route: 048
     Dates: start: 20190222, end: 20190225
  23. NADROPARIN [Concomitant]
     Active Substance: NADROPARIN
     Indication: Anticoagulant therapy
     Route: 058
     Dates: start: 20190221, end: 20190226
  24. OXAZEPAM [Concomitant]
     Active Substance: OXAZEPAM
     Indication: Anxiety
     Route: 048
     Dates: start: 2018, end: 20190327
  25. FUROSEMIDE [Concomitant]
     Active Substance: FUROSEMIDE
     Indication: Cardiac failure
     Route: 048
     Dates: start: 20190225
  26. FUROSEMIDE [Concomitant]
     Active Substance: FUROSEMIDE
     Dates: start: 20190221, end: 20190224
  27. DORZOLAMIDE [Concomitant]
     Active Substance: DORZOLAMIDE
     Indication: Ocular hypertension
     Route: 031
     Dates: end: 20230417
  28. BRIMONIDINE [Concomitant]
     Active Substance: BRIMONIDINE TARTRATE
     Indication: Ocular hypertension
     Route: 031
  29. SPIRONOLACTONE [Concomitant]
     Active Substance: SPIRONOLACTONE
     Indication: Cardiac failure
     Route: 048
  30. METOPROLOL [Concomitant]
     Active Substance: METOPROLOL
     Indication: Hypertension
     Route: 048
  31. PREDNISOLONE [Concomitant]
     Active Substance: PREDNISOLONE
     Indication: Uveitis
     Route: 031
     Dates: end: 20230417
  32. METRONIDAZOLE [Concomitant]
     Active Substance: METRONIDAZOLE
     Indication: Papulopustular rosacea
     Route: 061
     Dates: start: 20190322, end: 20211115

REACTIONS (5)
  - Haemorrhage [Recovered/Resolved]
  - Haematochezia [Unknown]
  - Pain [Unknown]
  - Palpitations [Recovered/Resolved]
  - Heavy menstrual bleeding [Unknown]

NARRATIVE: CASE EVENT DATE: 20210101
